FAERS Safety Report 6428810-X (Version None)
Quarter: 2009Q4

REPORT INFORMATION
  Report Type: 
  Country: None (occurrence: None)
  Receive Date: 20091105
  Receipt Date: 20091028
  Transmission Date: 20100525
  Serious: Yes (Hospitalization)
  Sender: FDA-Public Use
  Company Number: JP-JNJFOC-20091100226

PATIENT
  Sex: Female
  Weight: 46 kg

DRUGS (6)
  1. DOXORUBICIN HCL [Suspect]
     Route: 042
     Dates: start: 20090804, end: 20090915
  2. DOXORUBICIN HCL [Suspect]
     Indication: OVARIAN CANCER RECURRENT
     Route: 042
     Dates: start: 20090804, end: 20090915
  3. CARDENALIN [Concomitant]
     Route: 048
  4. AMLODIPINE [Concomitant]
     Route: 048
  5. GASMOTIN [Concomitant]
     Route: 048
  6. VOLTAREN [Concomitant]
     Route: 048

REACTIONS (1)
  - INTERSTITIAL LUNG DISEASE [None]
